FAERS Safety Report 6303901-2 (Version None)
Quarter: 2009Q3

REPORT INFORMATION
  Report Type: 
  Country: None (occurrence: None)
  Receive Date: 20090810
  Receipt Date: 20090810
  Transmission Date: 20100115
  Serious: Yes (Hospitalization)
  Sender: FDA-Public Use
  Company Number: None

PATIENT
  Age: 79 Year
  Sex: Female
  Weight: 56.6996 kg

DRUGS (1)
  1. LISINOPRIL [Suspect]
     Indication: BLOOD PRESSURE DECREASED
     Dosage: 10MG VI #30 1 A DAY
     Dates: start: 20090501

REACTIONS (7)
  - ARTHROPOD BITE [None]
  - COUGH [None]
  - DIZZINESS [None]
  - DYSPNOEA [None]
  - EXTRASYSTOLES [None]
  - NASAL DISCOMFORT [None]
  - RHINORRHOEA [None]
